FAERS Safety Report 23673329 (Version 4)
Quarter: 2024Q2

REPORT INFORMATION
  Report Type: Report from Study
  Country: CA (occurrence: CA)
  Receive Date: 20240326
  Receipt Date: 20240610
  Transmission Date: 20240716
  Serious: Yes (Hospitalization, Other)
  Sender: FDA-Public Use
  Company Number: CA-GLAXOSMITHKLINE-CA2023177935

PATIENT

DRUGS (10)
  1. MEPOLIZUMAB [Suspect]
     Active Substance: MEPOLIZUMAB
     Indication: Asthma
     Dosage: 100 MG, Q4W
     Route: 058
     Dates: start: 20231116
  2. MEPOLIZUMAB [Suspect]
     Active Substance: MEPOLIZUMAB
     Indication: Asthma
     Dosage: 100 MG, Q4W
     Route: 058
     Dates: start: 20231116
  3. MEPOLIZUMAB [Suspect]
     Active Substance: MEPOLIZUMAB
     Indication: Asthma
     Dosage: 100 MG, Q4W
     Route: 058
     Dates: start: 20231116
  4. MEPOLIZUMAB [Suspect]
     Active Substance: MEPOLIZUMAB
     Indication: Asthma
     Dosage: 100 MG, Q4W
     Route: 058
     Dates: start: 20231116
  5. MEPOLIZUMAB [Suspect]
     Active Substance: MEPOLIZUMAB
     Indication: Asthma
     Dosage: 100 MG, Q4W
     Route: 058
     Dates: start: 20231116
  6. AMLODIPINE [Concomitant]
     Active Substance: AMLODIPINE BESYLATE
     Indication: Product used for unknown indication
     Dosage: UNK
     Dates: end: 20240320
  7. IRBESARTAN [Concomitant]
     Active Substance: IRBESARTAN
     Indication: Product used for unknown indication
     Dosage: UNK
     Dates: end: 20240320
  8. CORTISONE [Concomitant]
     Active Substance: CORTISONE
     Indication: Product used for unknown indication
     Dosage: 50 MG, QD
     Route: 048
  9. CLINDAMYCIN [Concomitant]
     Active Substance: CLINDAMYCIN
     Indication: Product used for unknown indication
     Dosage: 3 DF, TID
     Dates: start: 20240521
  10. PREDNISONE [Concomitant]
     Active Substance: PREDNISONE
     Indication: Product used for unknown indication
     Dosage: 5 MG, QD (DIE)
     Route: 048
     Dates: start: 202401

REACTIONS (33)
  - Myocardial infarction [Unknown]
  - Loss of consciousness [Unknown]
  - Neurogenic shock [Unknown]
  - Hospitalisation [Unknown]
  - Exposure via skin contact [Unknown]
  - Confusional state [Unknown]
  - Dyspnoea [Recovered/Resolved]
  - Oxygen saturation [Unknown]
  - Wheezing [Unknown]
  - Fatigue [Unknown]
  - Vital functions abnormal [Unknown]
  - Asthenia [Not Recovered/Not Resolved]
  - Hyperhidrosis [Not Recovered/Not Resolved]
  - Cyanosis [Recovered/Resolved]
  - Hypertension [Unknown]
  - Respiratory depth increased [Unknown]
  - Nail disorder [Unknown]
  - Pallor [Recovered/Resolved]
  - Respiratory disorder [Unknown]
  - Nausea [Unknown]
  - Vomiting [Unknown]
  - Heart rate irregular [Not Recovered/Not Resolved]
  - Heart rate abnormal [Unknown]
  - Dizziness postural [Not Recovered/Not Resolved]
  - Dizziness [Unknown]
  - Blood pressure decreased [Unknown]
  - Localised infection [Not Recovered/Not Resolved]
  - Ear injury [Not Recovered/Not Resolved]
  - Device use confusion [Unknown]
  - Accidental exposure to product [Unknown]
  - Incorrect dose administered [Unknown]
  - Product dose omission issue [Unknown]
  - Inappropriate schedule of product administration [Unknown]

NARRATIVE: CASE EVENT DATE: 20231116
